FAERS Safety Report 14409263 (Version 1)
Quarter: 2018Q1

REPORT INFORMATION
  Report Type: Spontaneous
  Country: RU (occurrence: RU)
  Receive Date: 20180119
  Receipt Date: 20180119
  Transmission Date: 20180509
  Serious: Yes (Other)
  Sender: FDA-Public Use
  Company Number: RU-ASTRAZENECA-2018SE06865

PATIENT
  Age: 64 Year
  Sex: Female
  Weight: 75 kg

DRUGS (1)
  1. FORXIGA [Suspect]
     Active Substance: DAPAGLIFLOZIN
     Indication: TYPE 2 DIABETES MELLITUS
     Route: 048
     Dates: start: 201707

REACTIONS (4)
  - Nasopharyngitis [Not Recovered/Not Resolved]
  - Muscle spasms [Recovering/Resolving]
  - Blood glucose increased [Recovering/Resolving]
  - Tremor [Recovering/Resolving]

NARRATIVE: CASE EVENT DATE: 20180111
